FAERS Safety Report 16815623 (Version 1)
Quarter: 2019Q3

REPORT INFORMATION
  Report Type: Spontaneous
  Country: US (occurrence: US)
  Receive Date: 20190917
  Receipt Date: 20190917
  Transmission Date: 20191005
  Serious: No
  Sender: FDA-Public Use
  Company Number: US-ALLERGAN-1847658US

PATIENT
  Sex: Male

DRUGS (7)
  1. COCONUT OIL SUPPLEMENT [Concomitant]
     Indication: CONFUSIONAL STATE
     Dosage: UNK
     Route: 048
  2. BUSPAR [Concomitant]
     Active Substance: BUSPIRONE HYDROCHLORIDE
     Indication: FEELING OF RELAXATION
  3. UNSPECIFIED BULK MEDICATION [Concomitant]
     Dosage: UNK
  4. BUSPAR [Concomitant]
     Active Substance: BUSPIRONE HYDROCHLORIDE
     Indication: ANXIETY
  5. LINZESS [Suspect]
     Active Substance: LINACLOTIDE
     Indication: IRRITABLE BOWEL SYNDROME
     Dosage: 72 ?G, QD
     Route: 048
     Dates: start: 20180929
  6. LINZESS [Suspect]
     Active Substance: LINACLOTIDE
     Dosage: 145 ?G, QD
     Route: 048
     Dates: start: 201804
  7. UNSPECIFIED ALZHEIMER^S MEDICATION [Concomitant]
     Indication: CONFUSIONAL STATE
     Dosage: UNK

REACTIONS (6)
  - Product dose omission [Unknown]
  - Functional gastrointestinal disorder [Unknown]
  - Food allergy [Unknown]
  - Diarrhoea [Recovered/Resolved]
  - Inappropriate schedule of product administration [Unknown]
  - Off label use [Unknown]

NARRATIVE: CASE EVENT DATE: 201804
